FAERS Safety Report 6025854-7 (Version None)
Quarter: 2008Q4

REPORT INFORMATION
  Report Type: 
  Country: None (occurrence: None)
  Receive Date: 20081224
  Receipt Date: 20081209
  Transmission Date: 20090506
  Serious: Yes (Life-Threatening)
  Sender: FDA-Public Use
  Company Number: 2008AL008365

PATIENT
  Age: 65 Year
  Sex: Male
  Weight: 107.9561 kg

DRUGS (19)
  1. DIGOXIN [Suspect]
     Indication: ATRIAL FIBRILLATION
     Dosage: 0.25 MG, DAILY, PO
     Route: 048
     Dates: start: 20060201, end: 20080501
  2. PLAVIX [Concomitant]
  3. CRESTOR [Concomitant]
  4. SYNTHROID [Concomitant]
  5. HYDROCHLOROTHIAZIDE [Concomitant]
  6. ZETIA [Concomitant]
  7. COUMADIN [Concomitant]
  8. POTASSIUM CHLORIDE [Concomitant]
  9. CALCIUM GLUCONATE [Concomitant]
  10. AVODART [Concomitant]
  11. EPIPEN [Concomitant]
  12. FLUTICASONE PROPIONATE [Concomitant]
  13. GLUCOSAMINE [Concomitant]
  14. LEVOTHYROXINE [Concomitant]
  15. LYCOPENE [Concomitant]
  16. METOPROLOL [Concomitant]
  17. NIASPAN [Concomitant]
  18. TOPROL-XL [Concomitant]
  19. EPIPEN [Concomitant]

REACTIONS (6)
  - ARRHYTHMIA [None]
  - DIARRHOEA [None]
  - FATIGUE [None]
  - MEDICATION ERROR [None]
  - MYOCARDIAL INFARCTION [None]
  - VISUAL IMPAIRMENT [None]
